FAERS Safety Report 7977839-9 (Version None)
Quarter: 2011Q4

REPORT INFORMATION
  Report Type: 
  Country: None (occurrence: None)
  Receive Date: 20111214
  Receipt Date: 20111201
  Transmission Date: 20120403
  Serious: No
  Sender: FDA-Public Use
  Company Number: US-AMGEN-USASP2011044456

PATIENT
  Age: 24 Year
  Sex: Female

DRUGS (1)
  1. ENBREL [Suspect]
     Indication: RHEUMATOID ARTHRITIS
     Dosage: 50 MG, QWK
     Dates: start: 20110815

REACTIONS (9)
  - INJECTION SITE HAEMATOMA [None]
  - INJECTION SITE ERYTHEMA [None]
  - EAR INFECTION [None]
  - PNEUMONIA PRIMARY ATYPICAL [None]
  - INJECTION SITE PAIN [None]
  - INJECTION SITE RASH [None]
  - MIGRAINE [None]
  - INJECTION SITE REACTION [None]
  - SINUSITIS [None]
